FAERS Safety Report 8481991-9 (Version None)
Quarter: 2012Q3

REPORT INFORMATION
  Report Type: 
  Country: None (occurrence: None)
  Receive Date: 20120702
  Receipt Date: 20120625
  Transmission Date: 20120928
  Serious: Yes (Hospitalization)
  Sender: FDA-Public Use
  Company Number: PHHY2012TR055403

PATIENT
  Sex: Male

DRUGS (5)
  1. TACROLIMUS [Concomitant]
  2. PROGRAF [Concomitant]
     Dosage: 0.5 MG, BID
     Dates: start: 20110321, end: 20110513
  3. PROGRAF [Concomitant]
     Dosage: 1.5 MG, BID
     Dates: start: 20110513, end: 20110523
  4. EVEROLIMUS [Suspect]
     Dosage: 2 MG, DAILY
     Route: 048
     Dates: start: 20110321, end: 20110518
  5. PROGRAF [Concomitant]
     Dosage: 0.5 MG, BID
     Dates: start: 20110523

REACTIONS (4)
  - HAEMOGLOBIN DECREASED [None]
  - HAEMATOCRIT DECREASED [None]
  - POLYNEUROPATHY [None]
  - BLOOD PRESSURE SYSTOLIC INCREASED [None]
